FAERS Safety Report 5109908-5 (Version None)
Quarter: 2006Q3

REPORT INFORMATION
  Report Type: 
  Country: None (occurrence: None)
  Receive Date: 20060921
  Receipt Date: 20060830
  Transmission Date: 20061208
  Serious: Yes (Other)
  Sender: FDA-Public Use
  Company Number: DE-BRISTOL-MYERS SQUIBB COMPANY-13498928

PATIENT
  Age: 55 Year
  Sex: Female
  Weight: 69 kg

DRUGS (6)
  1. TAXOL [Suspect]
  2. METOCLOPRAMIDE [Suspect]
     Indication: PREMEDICATION
     Dates: start: 20060815, end: 20060829
  3. ZOFRAN [Suspect]
  4. TAVEGIL [Suspect]
  5. RANITIDINE [Suspect]
  6. DEXAMETHASONE TAB [Suspect]

REACTIONS (6)
  - AGITATION [None]
  - AKATHISIA [None]
  - DRY MOUTH [None]
  - DYSKINESIA [None]
  - DYSPHONIA [None]
  - POST PROCEDURAL COMPLICATION [None]
